FAERS Safety Report 13962024 (Version 6)
Quarter: 2017Q4

REPORT INFORMATION
  Report Type: Report from Study
  Country: US (occurrence: US)
  Receive Date: 20170912
  Receipt Date: 20171109
  Transmission Date: 20180320
  Serious: Yes (Hospitalization)
  Sender: FDA-Public Use
  Company Number: US-ACTELION-A-US2017-157407

PATIENT
  Age: 56 Year
  Sex: Female
  Weight: 79.37 kg

DRUGS (5)
  1. OPSUMIT [Suspect]
     Active Substance: MACITENTAN
     Indication: PULMONARY ARTERIAL HYPERTENSION
     Dosage: 10 MG, QD
     Route: 048
  2. VELETRI [Suspect]
     Active Substance: EPOPROSTENOL
     Indication: PULMONARY ARTERIAL HYPERTENSION
     Dosage: 25 NG/KG, PER MIN
     Route: 042
  3. COUMADIN [Concomitant]
     Active Substance: WARFARIN SODIUM
  4. UPTRAVI [Concomitant]
     Active Substance: SELEXIPAG
     Indication: PULMONARY ARTERIAL HYPERTENSION
     Route: 048
  5. ORENITRAM [Concomitant]
     Active Substance: TREPROSTINIL

REACTIONS (17)
  - Device related infection [Unknown]
  - Acute respiratory failure [Unknown]
  - Abdominal discomfort [Unknown]
  - Catheter site rash [Unknown]
  - Catheter site related reaction [Unknown]
  - Right ventricular failure [Unknown]
  - Pyrexia [Unknown]
  - Oedema peripheral [Unknown]
  - Rash [Recovering/Resolving]
  - Urticaria [Unknown]
  - Respiratory tract infection [Unknown]
  - Cardiac failure acute [Unknown]
  - Bacteraemia [Unknown]
  - Pneumonia [Unknown]
  - Cardiac failure [Unknown]
  - Pruritus generalised [Unknown]
  - Constipation [Unknown]
